FAERS Safety Report 20185150 (Version 2)
Quarter: 2021Q4

REPORT INFORMATION
  Report Type: Spontaneous
  Country: EE (occurrence: EE)
  Receive Date: 20211215
  Receipt Date: 20211221
  Transmission Date: 20220303
  Serious: Yes (Death, Other)
  Sender: FDA-Public Use
  Company Number: EE-NOVARTISPH-NVSC2021EE283891

PATIENT
  Age: 71 Year
  Sex: Male

DRUGS (2)
  1. RYDAPT [Suspect]
     Active Substance: MIDOSTAURIN
     Indication: Acute myelomonocytic leukaemia
     Dosage: 50 MG (5 PLUS 2 PLUS MIDOSTAURIN 50 MGX2 (DAYS 8 TO 21))
     Route: 065
     Dates: start: 202003
  2. RYDAPT [Suspect]
     Active Substance: MIDOSTAURIN
     Dosage: 50 MG (7 PLUS 3 PLUS MIDOSTAURIN (DAYS 8 TO 21) 1 CR)
     Route: 065
     Dates: start: 202004

REACTIONS (1)
  - Febrile neutropenia [Fatal]

NARRATIVE: CASE EVENT DATE: 20200401
